FAERS Safety Report 11825106 (Version 1)
Quarter: 2015Q4

REPORT INFORMATION
  Report Type: Report from Study
  Country: US (occurrence: US)
  Receive Date: 20151211
  Receipt Date: 20151211
  Transmission Date: 20160305
  Serious: No
  Sender: FDA-Public Use
  Company Number: PHEH2015US025410

PATIENT
  Sex: Female
  Weight: 49.89 kg

DRUGS (1)
  1. TOBI PODHALER [Suspect]
     Active Substance: TOBRAMYCIN
     Indication: CYSTIC FIBROSIS
     Dosage: 112 MG, BID (EVERY OTHER 2 WEEKS INSTEAD OF EVERY OTHER 28 DAYS)
     Route: 055

REACTIONS (1)
  - Incorrect dose administered [Not Recovered/Not Resolved]
